FAERS Safety Report 25149767 (Version 1)
Quarter: 2025Q2

REPORT INFORMATION
  Report Type: Spontaneous
  Country: US (occurrence: None)
  Receive Date: 20250401
  Receipt Date: 20250401
  Transmission Date: 20250716
  Serious: Yes (Death)
  Sender: FDA-CTU
  Company Number: None

PATIENT
  Age: 72 Year
  Sex: Male

DRUGS (23)
  1. OFEV [Suspect]
     Active Substance: NINTEDANIB
     Indication: Idiopathic pulmonary fibrosis
     Dosage: FREQUENCY : TWICE A DAY;?
     Route: 048
     Dates: start: 20240118, end: 20250223
  2. PROPRANOLOL [Concomitant]
     Active Substance: PROPRANOLOL HYDROCHLORIDE
  3. DOCUSATE SODIUM [Concomitant]
     Active Substance: DOCUSATE SODIUM
  4. OMEPRAZOLE [Concomitant]
     Active Substance: OMEPRAZOLE
  5. CLONAZEPAM [Concomitant]
     Active Substance: CLONAZEPAM
  6. DUONEB [Concomitant]
     Active Substance: ALBUTEROL SULFATE\IPRATROPIUM BROMIDE
  7. PREDNISONE [Concomitant]
     Active Substance: PREDNISONE
  8. STIOLTO RESPIMAT [Concomitant]
     Active Substance: OLODATEROL HYDROCHLORIDE\TIOTROPIUM BROMIDE MONOHYDRATE
  9. ATOVAQUONE [Concomitant]
     Active Substance: ATOVAQUONE
  10. calcium with Vit D3 [Concomitant]
  11. LACTOBACILLUS ACIDOPHILUS\LACTOBACILLUS DELBRUECKII SUBSP. BULGARICUS [Concomitant]
     Active Substance: LACTOBACILLUS ACIDOPHILUS\LACTOBACILLUS DELBRUECKII SUBSP. BULGARICUS
  12. alvesco HFA [Concomitant]
  13. TERAZOSIN [Concomitant]
     Active Substance: TERAZOSIN HYDROCHLORIDE
  14. Vita D3 [Concomitant]
  15. VITAMINS [Concomitant]
     Active Substance: VITAMINS
  16. MIRTAZAPINE [Concomitant]
     Active Substance: MIRTAZAPINE
  17. BIKTARVY [Concomitant]
     Active Substance: BICTEGRAVIR SODIUM\EMTRICITABINE\TENOFOVIR ALAFENAMIDE FUMARATE
  18. CLEARLAX [Concomitant]
     Active Substance: POLYETHYLENE GLYCOL 3350
  19. SENNA [Concomitant]
     Active Substance: SENNOSIDES
  20. DULOXETINE [Concomitant]
     Active Substance: DULOXETINE
  21. GABAPENTIN [Concomitant]
     Active Substance: GABAPENTIN
  22. ROSUVASTATIN [Concomitant]
     Active Substance: ROSUVASTATIN
  23. TROSPIUM [Concomitant]
     Active Substance: TROSPIUM

REACTIONS (1)
  - Death [None]

NARRATIVE: CASE EVENT DATE: 20250223
